FAERS Safety Report 9382755 (Version 1)
Quarter: 2013Q3

REPORT INFORMATION
  Report Type: Spontaneous
  Country: US (occurrence: US)
  Receive Date: 20130703
  Receipt Date: 20130703
  Transmission Date: 20140515
  Serious: Yes (Death, Hospitalization, Other)
  Sender: FDA-Public Use
  Company Number: US-009507513-1107USA02911

PATIENT
  Sex: Male
  Weight: 60.78 kg

DRUGS (5)
  1. FOSAMAX [Suspect]
     Indication: OSTEOPOROSIS
     Dosage: 70 MG, QW
     Route: 048
     Dates: start: 20040220, end: 20061122
  2. METICORTEN [Concomitant]
     Dates: start: 2002, end: 201102
  3. LEVOTHROID [Concomitant]
     Indication: HYPOTHYROIDISM
     Dates: start: 2003, end: 2007
  4. FOSAMAX PLUS D [Suspect]
     Indication: OSTEOPOROSIS
     Dosage: 70MG/2800 IU
     Route: 048
     Dates: start: 20070214, end: 200812
  5. FOSAMAX [Suspect]
     Indication: OSTEOPOROSIS
     Dosage: 70 MG, QW
     Route: 048
     Dates: start: 20090113, end: 20100805

REACTIONS (73)
  - Lip and/or oral cavity cancer [Unknown]
  - Retinal vein occlusion [Unknown]
  - Renal failure chronic [Not Recovered/Not Resolved]
  - Squamous cell carcinoma of skin [Unknown]
  - Cardiac failure congestive [Unknown]
  - Starvation [Fatal]
  - Cardiac failure congestive [Fatal]
  - Fall [Unknown]
  - Depression [Unknown]
  - Asthenia [Unknown]
  - Leukocytosis [Unknown]
  - Squamous cell carcinoma of skin [Unknown]
  - Back pain [Unknown]
  - Arthralgia [Unknown]
  - Osteonecrosis of jaw [Recovering/Resolving]
  - Tooth fracture [Unknown]
  - Dental caries [Unknown]
  - Exostosis [Unknown]
  - Cataract [Unknown]
  - Tinnitus [Unknown]
  - Adverse drug reaction [Unknown]
  - Spinal osteoarthritis [Unknown]
  - Spinal osteoarthritis [Unknown]
  - Cervical radiculopathy [Unknown]
  - Sleep apnoea syndrome [Unknown]
  - Pulpitis dental [Unknown]
  - Aortic arteriosclerosis [Unknown]
  - Intervertebral disc degeneration [Unknown]
  - Tricuspid valve incompetence [Unknown]
  - Left atrial dilatation [Unknown]
  - Aortic valve stenosis [Unknown]
  - Mitral valve incompetence [Unknown]
  - Pulmonary hypertension [Unknown]
  - Road traffic accident [Unknown]
  - Malaise [Unknown]
  - Arrhythmia supraventricular [Unknown]
  - Cystoid macular oedema [Unknown]
  - Blood thyroid stimulating hormone decreased [Unknown]
  - Posterior capsule rupture [Unknown]
  - Spinal compression fracture [Unknown]
  - Chronic obstructive pulmonary disease [Unknown]
  - Tooth disorder [Unknown]
  - Pleural effusion [Unknown]
  - Pneumonia [Unknown]
  - Conjunctival haemorrhage [Unknown]
  - Dyspnoea exertional [Unknown]
  - Fall [Unknown]
  - Cataract [Unknown]
  - Inguinal hernia [Unknown]
  - Hallucination [Unknown]
  - Anaemia [Unknown]
  - Prostatic specific antigen increased [Unknown]
  - Body height decreased [Unknown]
  - Cardiac murmur [Unknown]
  - Spinal osteoarthritis [Unknown]
  - Grief reaction [Unknown]
  - Mitral valve stenosis [Unknown]
  - Insomnia [Unknown]
  - Anxiety [Unknown]
  - Dyspnoea paroxysmal nocturnal [Recovering/Resolving]
  - Hallucination, auditory [Unknown]
  - Transient ischaemic attack [Unknown]
  - Joint stiffness [Unknown]
  - Drug hypersensitivity [Unknown]
  - Oedema peripheral [Unknown]
  - Joint swelling [Unknown]
  - Drug ineffective [Unknown]
  - Drug ineffective [Unknown]
  - Oedema peripheral [Recovering/Resolving]
  - Aphthous stomatitis [Unknown]
  - Rash [Unknown]
  - Musculoskeletal chest pain [Unknown]
  - Constipation [Unknown]
